FAERS Safety Report 12412966 (Version 2)
Quarter: 2016Q2

REPORT INFORMATION
  Report Type: Report from Study
  Country: AU (occurrence: AU)
  Receive Date: 20160527
  Receipt Date: 20160610
  Transmission Date: 20160815
  Serious: Yes (Hospitalization)
  Sender: FDA-Public Use
  Company Number: AU-ABBVIE-16P-008-1611848-00

PATIENT
  Age: 75 Year
  Sex: Female

DRUGS (2)
  1. DUODOPA [Suspect]
     Active Substance: CARBIDOPA\LEVODOPA
     Indication: PARKINSON^S DISEASE
     Dosage: 16 HOUR INFUSION, CRD 3.6ML/HR
     Route: 050
     Dates: start: 20160412
  2. DUODOPA [Suspect]
     Active Substance: CARBIDOPA\LEVODOPA
     Dosage: CRD 3.4ML/HR
     Route: 050

REACTIONS (14)
  - Abdominal pain [Unknown]
  - Stoma site infection [Not Recovered/Not Resolved]
  - Gastrointestinal disorder [Unknown]
  - Embedded device [Recovered/Resolved]
  - Gastrointestinal infection [Unknown]
  - Abdominal pain [Recovered/Resolved]
  - Abdominal pain [Not Recovered/Not Resolved]
  - Stoma site erythema [Unknown]
  - Stoma site discharge [Unknown]
  - Device dislocation [Unknown]
  - Back pain [Not Recovered/Not Resolved]
  - Dyskinesia [Recovered/Resolved]
  - Stoma site pain [Recovered/Resolved]
  - Stoma site pain [Not Recovered/Not Resolved]

NARRATIVE: CASE EVENT DATE: 20160417
